FAERS Safety Report 17508767 (Version 1)
Quarter: 2020Q1

REPORT INFORMATION
  Report Type: Spontaneous
  Country: US (occurrence: US)
  Receive Date: 20200226
  Receipt Date: 20200226
  Transmission Date: 20200409
  Serious: No
  Sender: FDA-Public Use
  Company Number: None

PATIENT
  Sex: Female

DRUGS (1)
  1. HUMIRA [Suspect]
     Active Substance: ADALIMUMAB
     Indication: SPONDYLOARTHROPATHY
     Dosage: FREQUENCY: EVERY 2 WEEKS
     Dates: start: 20190518, end: 20200219

REACTIONS (5)
  - Nausea [None]
  - Sinusitis [None]
  - Dry eye [None]
  - Vomiting [None]
  - Nasal congestion [None]
